FAERS Safety Report 4980292-0 (Version None)
Quarter: 2006Q2

REPORT INFORMATION
  Report Type: 
  Country: None (occurrence: None)
  Receive Date: 20060424
  Receipt Date: 20060413
  Transmission Date: 20061013
  Serious: Yes (Death, Hospitalization)
  Sender: FDA-Public Use
  Company Number: DE-ABBOTT-06P-062-0330681-00

PATIENT
  Sex: Female
  Weight: 85 kg

DRUGS (12)
  1. ZEMPLAR [Suspect]
     Indication: HYPERPARATHYROIDISM SECONDARY
     Route: 042
     Dates: start: 20051107, end: 20060110
  2. ZEMPLAR [Suspect]
     Route: 042
     Dates: start: 20050823, end: 20050913
  3. ZEMPLAR [Suspect]
     Route: 042
     Dates: start: 20050913, end: 20051107
  4. CALCIUM ACETATE [Concomitant]
     Indication: HYPERPARATHYROIDISM SECONDARY
     Route: 048
  5. ALFACALCIDOL [Concomitant]
     Indication: HYPERPARATHYROIDISM SECONDARY
     Route: 048
  6. ISOSORBIDE MONONITRATE [Concomitant]
     Indication: DRUG USE FOR UNKNOWN INDICATION
     Route: 048
     Dates: start: 20030717
  7. CORVATON RETARD [Concomitant]
     Indication: DRUG USE FOR UNKNOWN INDICATION
     Route: 048
     Dates: start: 20030717
  8. FALITHROM [Concomitant]
     Indication: DRUG USE FOR UNKNOWN INDICATION
     Route: 048
     Dates: start: 20030925
  9. DEDRCI [Concomitant]
     Indication: DRUG USE FOR UNKNOWN INDICATION
     Route: 048
     Dates: start: 20041019
  10. BICANORM [Concomitant]
     Indication: DRUG USE FOR UNKNOWN INDICATION
     Route: 048
     Dates: start: 20041221
  11. FLUVASTATIN SODIUM [Concomitant]
     Indication: DRUG USE FOR UNKNOWN INDICATION
     Route: 048
     Dates: start: 20050310
  12. TRAMADOL HCL [Concomitant]
     Indication: DRUG USE FOR UNKNOWN INDICATION
     Route: 048
     Dates: start: 20041009

REACTIONS (2)
  - CARDIAC FAILURE ACUTE [None]
  - PNEUMONIA [None]
